FAERS Safety Report 10842454 (Version 13)
Quarter: 2016Q2

REPORT INFORMATION
  Report Type: Spontaneous
  Country: BR (occurrence: BR)
  Receive Date: 20150220
  Receipt Date: 20160611
  Transmission Date: 20160815
  Serious: Yes (Other)
  Sender: FDA-Public Use
  Company Number: BR-AMGEN-BRASP2015015520

PATIENT
  Age: 51 Year
  Sex: Female
  Weight: 72 kg

DRUGS (23)
  1. ENBREL [Suspect]
     Active Substance: ETANERCEPT
     Indication: RHEUMATOID ARTHRITIS
     Dosage: 50 MG, ONCE WEEKLY
     Route: 058
     Dates: start: 201502
  2. OMEPRAZOLE. [Concomitant]
     Active Substance: OMEPRAZOLE
     Indication: GASTRIC DISORDER
     Dosage: ONE TABLET (20 MG), DAILY IN THE MORNING
     Dates: start: 2014
  3. TRAMADOL. [Concomitant]
     Active Substance: TRAMADOL
     Dosage: UNK
  4. SIMVASTATIN. [Concomitant]
     Active Substance: SIMVASTATIN
     Indication: BLOOD CHOLESTEROL ABNORMAL
     Dosage: ONE TABLET (20 MG), DAILY (AT NIGHT)
     Dates: start: 2014
  5. LEFLUNOMIDE. [Concomitant]
     Active Substance: LEFLUNOMIDE
     Dosage: ONE TABLET (20 MG), DAILY
     Dates: start: 2012
  6. TRAMAL [Concomitant]
     Active Substance: TRAMADOL
     Indication: ABASIA
  7. CYCLOBENZAPRINE [Concomitant]
     Active Substance: CYCLOBENZAPRINE
     Dosage: UNK
  8. CLONAZEPAM. [Interacting]
     Active Substance: CLONAZEPAM
     Indication: ANXIETY
  9. VOLTAREN [Suspect]
     Active Substance: DICLOFENAC SODIUM
     Indication: PAIN
     Dosage: 1 TABLET OF STRENGHT 50 MG, ONCE WEEKLY
     Route: 065
     Dates: start: 2015
  10. PREDNISONE. [Suspect]
     Active Substance: PREDNISONE
     Indication: PAIN
     Dosage: 1 TABLET OF STRENGTH 20 MG, ONCE WEEKLY
     Route: 065
     Dates: start: 2015
  11. TRAMAL [Concomitant]
     Active Substance: TRAMADOL
     Indication: PAIN
     Dosage: SHE TAKES EVERY 15 DAYS WHEN COULD NOT WALK NEITHER MOVE HERSELF
     Route: 048
  12. ENBREL [Interacting]
     Active Substance: ETANERCEPT
     Dosage: UNK
     Route: 065
  13. CARBAMAZEPINE. [Interacting]
     Active Substance: CARBAMAZEPINE
     Indication: SLEEP DISORDER
     Dosage: HALF TABLET (100 MG), UNSPECIFIED FREQUENCY
     Route: 065
     Dates: start: 2014
  14. FOLIC ACID. [Concomitant]
     Active Substance: FOLIC ACID
     Dosage: 1 TABLET WEEKLY
     Dates: start: 2013
  15. OMEPRAZOLE. [Concomitant]
     Active Substance: OMEPRAZOLE
     Dosage: 1 TABLET (UNSPECIFIED DOSE), AT NIGHT
  16. PROFENID [Concomitant]
     Active Substance: KETOPROFEN
     Dosage: UNK
  17. ENBREL [Interacting]
     Active Substance: ETANERCEPT
     Dosage: UNK
     Route: 058
  18. CARBAMAZEPINE. [Interacting]
     Active Substance: CARBAMAZEPINE
     Indication: DEPRESSION
     Dosage: ONE TABLET (200 MG), 1X/DAY
     Route: 065
  19. CLONAZEPAM. [Interacting]
     Active Substance: CLONAZEPAM
     Indication: ANXIETY
     Dosage: 2 MG, ONCE DAILY, AS NEEDED
     Route: 048
     Dates: start: 2012
  20. CLONAZEPAM. [Interacting]
     Active Substance: CLONAZEPAM
     Indication: SLEEP DISORDER THERAPY
     Dosage: HALF TABLET (UNSPECIFIED DOSE), UNSPECIFIED FREQUENCY
     Route: 048
  21. AMITRIPTYLINE [Interacting]
     Active Substance: AMITRIPTYLINE
     Indication: SLEEP DISORDER
     Dosage: 25 MG, 1X/DAY (AT NIGHT)
     Route: 065
     Dates: start: 2012
  22. AMITRIPTYLINE [Interacting]
     Active Substance: AMITRIPTYLINE
     Indication: PAIN
     Dosage: 2 TABLETS (40 MG), AT NIGHT
     Route: 065
  23. SERTRALINE [Concomitant]
     Active Substance: SERTRALINE HYDROCHLORIDE
     Indication: DEPRESSION
     Dosage: 2 X 25 MG TABLETS
     Dates: start: 2014

REACTIONS (40)
  - Feeling hot [Recovered/Resolved]
  - Drug effect decreased [Unknown]
  - Asthenia [Not Recovered/Not Resolved]
  - Decreased immune responsiveness [Recovered/Resolved]
  - Arthralgia [Not Recovered/Not Resolved]
  - Abasia [Unknown]
  - Discomfort [Not Recovered/Not Resolved]
  - Cough [Recovered/Resolved]
  - Rash [Unknown]
  - Pain [Recovered/Resolved]
  - Screaming [Unknown]
  - Drug interaction [Not Recovered/Not Resolved]
  - Haematochezia [Not Recovered/Not Resolved]
  - Mass [Recovered/Resolved]
  - Pruritus [Recovered/Resolved]
  - Pain [Not Recovered/Not Resolved]
  - Mobility decreased [Unknown]
  - Palpitations [Not Recovered/Not Resolved]
  - Drug ineffective [Not Recovered/Not Resolved]
  - Injection site erythema [Recovered/Resolved]
  - Pyrexia [Recovered/Resolved]
  - Hyperhidrosis [Recovered/Resolved]
  - Anogenital warts [Not Recovered/Not Resolved]
  - Injection site reaction [Recovered/Resolved]
  - Fluid retention [Unknown]
  - Pain in extremity [Not Recovered/Not Resolved]
  - Depressed mood [Unknown]
  - Musculoskeletal chest pain [Unknown]
  - Condition aggravated [Unknown]
  - Influenza [Recovered/Resolved]
  - Erythema [Recovered/Resolved]
  - Swelling [Unknown]
  - Feeling cold [Recovered/Resolved]
  - Vascular pain [Not Recovered/Not Resolved]
  - Joint range of motion decreased [Recovered/Resolved]
  - Sluggishness [Unknown]
  - Condition aggravated [Recovered/Resolved]
  - Insomnia [Not Recovered/Not Resolved]
  - Peripheral swelling [Recovered/Resolved]
  - Emotional distress [Unknown]

NARRATIVE: CASE EVENT DATE: 2015
